FAERS Safety Report 5215262-0 (Version None)
Quarter: 2007Q1

REPORT INFORMATION
  Report Type: 
  Country: None (occurrence: None)
  Receive Date: 20061122
  Receipt Date: 20060522
  Transmission Date: 20070707
  Serious: Yes (Hospitalization)
  Sender: FDA-Public Use
  Company Number: HQWYE504823MAY06

PATIENT
  Age: 90 Year
  Sex: Male

DRUGS (2)
  1. ZOSYN [Suspect]
     Indication: PNEUMONIA
     Dosage: INTRAVENOUS
     Route: 042
     Dates: start: 20060301, end: 20060101
  2. ARICEPT [Concomitant]

REACTIONS (3)
  - CLOSTRIDIAL INFECTION [None]
  - RASH PRURITIC [None]
  - URINARY TRACT INFECTION [None]
